FAERS Safety Report 7382970-5 (Version None)
Quarter: 2011Q1

REPORT INFORMATION
  Report Type: 
  Country: None (occurrence: None)
  Receive Date: 20110330
  Receipt Date: 20110316
  Transmission Date: 20110831
  Serious: Yes (Other)
  Sender: FDA-Public Use
  Company Number: KR-RANBAXY-2011RR-42563

PATIENT
  Age: 39 Year
  Sex: Male
  Weight: 65 kg

DRUGS (2)
  1. MIDAZOLAM [Suspect]
     Dosage: 2 MG, UNK
     Route: 042
  2. CEFTIZOXIME [Concomitant]
     Dosage: 1 G, UNK
     Route: 042

REACTIONS (2)
  - DYSPNOEA [None]
  - HYPERSENSITIVITY [None]
